FAERS Safety Report 16790237 (Version 1)
Quarter: 2019Q3

REPORT INFORMATION
  Report Type: Spontaneous
  Country: US (occurrence: US)
  Receive Date: 20190716
  Receipt Date: 20190716
  Transmission Date: 20191005
  Serious: No
  Sender: FDA-Public Use
  Company Number: None

PATIENT
  Age: 62 Year
  Sex: Female
  Weight: 86.18 kg

DRUGS (4)
  1. HYDROMORPHONE HCL 2MG TAB MALL [Suspect]
     Active Substance: HYDROMORPHONE HYDROCHLORIDE
     Indication: ARTHRITIS
     Dosage: ?          QUANTITY:25 DF DOSAGE FORM;OTHER FREQUENCY:1-2 TABLETS EVERY ;?
     Route: 048
     Dates: start: 20181030, end: 20181030
  2. SULFASULAZINE [Concomitant]
  3. VITAMIN D [Concomitant]
     Active Substance: VITAMIN D NOS
  4. CALCIUM [Concomitant]
     Active Substance: CALCIUM

REACTIONS (8)
  - Insomnia [None]
  - Vomiting [None]
  - Musculoskeletal pain [None]
  - Fatigue [None]
  - Dizziness [None]
  - Neck pain [None]
  - Pain [None]
  - Pain in extremity [None]

NARRATIVE: CASE EVENT DATE: 20181030
